FAERS Safety Report 4347839-9 (Version None)
Quarter: 2004Q2

REPORT INFORMATION
  Report Type: 
  Country: None (occurrence: None)
  Receive Date: 20040422
  Receipt Date: 20040406
  Transmission Date: 20050107
  Serious: Yes (Hospitalization)
  Sender: FDA-Public Use
  Company Number: 193190

PATIENT
  Sex: Female
  Weight: 58.9676 kg

DRUGS (6)
  1. AVONEX [Suspect]
     Indication: MULTIPLE SCLEROSIS
     Dosage: 30 MCG QW IM
     Route: 030
     Dates: start: 20000101
  2. AVONEX [Suspect]
     Indication: MULTIPLE SCLEROSIS
     Dosage: 30 MCG QW IM
     Route: 030
     Dates: start: 20040101
  3. ALPRAZOLAM [Concomitant]
  4. MEPERIDINE HCL [Concomitant]
  5. NEURONTIN [Concomitant]
  6. DURAGESIC [Concomitant]

REACTIONS (11)
  - CATHETER RELATED COMPLICATION [None]
  - CATHETER SITE INFECTION [None]
  - CONDITION AGGRAVATED [None]
  - CONVULSION [None]
  - DEPRESSION [None]
  - DRUG ADDICT [None]
  - JUGULAR VEIN THROMBOSIS [None]
  - MULTIPLE SCLEROSIS [None]
  - PULMONARY THROMBOSIS [None]
  - THROMBOPHLEBITIS [None]
  - VEIN DISORDER [None]
